FAERS Safety Report 16852966 (Version 1)
Quarter: 2019Q3

REPORT INFORMATION
  Report Type: Report from Study
  Country: US (occurrence: US)
  Receive Date: 20190925
  Receipt Date: 20190925
  Transmission Date: 20191005
  Serious: Yes (Death)
  Sender: FDA-Public Use
  Company Number: US-ALLERGAN-1915927US

PATIENT
  Sex: Male

DRUGS (3)
  1. BOTULINUM TOXIN TYPE A - GENERAL (9060X) [Suspect]
     Active Substance: BOTULINUM TOXIN TYPE A
     Dosage: 200 UNITS, SINGLE
     Route: 065
  2. AMLODIPINE [Concomitant]
     Active Substance: AMLODIPINE BESYLATE
     Indication: HYPERTENSION
     Dosage: UNK
     Route: 048
  3. BOTULINUM TOXIN TYPE A - GENERAL (9060X) [Suspect]
     Active Substance: BOTULINUM TOXIN TYPE A
     Indication: TORTICOLLIS
     Dosage: UNK UNITS
     Route: 030
     Dates: start: 20181223, end: 20181223

REACTIONS (5)
  - Tremor [Recovered/Resolved]
  - Injection site mass [Recovering/Resolving]
  - Death [Fatal]
  - Musculoskeletal stiffness [Unknown]
  - Injection site pain [Unknown]

NARRATIVE: CASE EVENT DATE: 20181223
